FAERS Safety Report 4365983-7 (Version None)
Quarter: 2004Q2

REPORT INFORMATION
  Report Type: 
  Country: None (occurrence: None)
  Receive Date: 20040526
  Receipt Date: 20040517
  Transmission Date: 20050107
  Serious: Yes (Hospitalization)
  Sender: FDA-Public Use
  Company Number: 200415356GDDC

PATIENT
  Age: 49 Year
  Sex: Male

DRUGS (2)
  1. FUROSEMIDE [Suspect]
     Dosage: DOSE: UNK
  2. ACE INHIBITOR NOS [Concomitant]
     Dosage: DOSE: UNK

REACTIONS (8)
  - ANAEMIA [None]
  - CARCINOEMBRYONIC ANTIGEN INCREASED [None]
  - COLITIS ISCHAEMIC [None]
  - COLONIC STENOSIS [None]
  - FATIGUE [None]
  - GASTROINTESTINAL MOTILITY DISORDER [None]
  - LARGE INTESTINAL ULCER HAEMORRHAGE [None]
  - WEIGHT DECREASED [None]
